FAERS Safety Report 6543668-6 (Version None)
Quarter: 2010Q1

REPORT INFORMATION
  Report Type: 
  Country: None (occurrence: None)
  Receive Date: 20100120
  Receipt Date: 20100115
  Transmission Date: 20100710
  Serious: Yes (Hospitalization)
  Sender: FDA-Public Use
  Company Number: NO-MERCK-0902NOR00004

PATIENT
  Age: 57 Year
  Sex: Female

DRUGS (3)
  1. ZETIA [Suspect]
     Route: 048
     Dates: start: 20080804
  2. CARVEDILOL [Concomitant]
     Route: 048
  3. CITALOPRAM HYDROBROMIDE [Concomitant]
     Route: 048

REACTIONS (2)
  - ADENOCARCINOMA [None]
  - COLON CANCER [None]
